FAERS Safety Report 16614793 (Version 2)
Quarter: 2019Q3

REPORT INFORMATION
  Report Type: Spontaneous
  Country: GB (occurrence: GB)
  Receive Date: 20190723
  Receipt Date: 20190926
  Transmission Date: 20191004
  Serious: Yes (Hospitalization, Other)
  Sender: FDA-Public Use
  Company Number: GB-SA-2019SA065657

PATIENT
  Age: 32 Year
  Sex: Female

DRUGS (1)
  1. LEMTRADA [Suspect]
     Active Substance: ALEMTUZUMAB
     Indication: MULTIPLE SCLEROSIS
     Dosage: 12 MG, UNK
     Route: 041
     Dates: start: 201804

REACTIONS (4)
  - Peripheral swelling [Unknown]
  - Escherichia infection [Recovered/Resolved]
  - Allergy to arthropod bite [Unknown]
  - Contusion [Unknown]

NARRATIVE: CASE EVENT DATE: 20190219
